FAERS Safety Report 18706393 (Version 1)
Quarter: 2021Q1

REPORT INFORMATION
  Report Type: Spontaneous
  Country: US (occurrence: US)
  Receive Date: 20210106
  Receipt Date: 20210106
  Transmission Date: 20210419
  Serious: Yes (Hospitalization)
  Sender: FDA-Public Use
  Company Number: None

PATIENT
  Sex: Male
  Weight: 77.6 kg

DRUGS (4)
  1. CAMPTOSAR [Suspect]
     Active Substance: IRINOTECAN HYDROCHLORIDE
     Dates: end: 20201221
  2. 5?FLUOROURACIL (5?FU) (19893) 4464 [Suspect]
     Active Substance: FLUOROURACIL
     Dates: end: 20201223
  3. LEUCOVORIN 744 MG CALCIUM [Suspect]
     Active Substance: LEUCOVORIN CALCIUM
     Dates: end: 20201221
  4. ELOXATIN [Suspect]
     Active Substance: OXALIPLATIN
     Dates: end: 20201221

REACTIONS (8)
  - Tachycardia [None]
  - Escherichia test positive [None]
  - Mental status changes [None]
  - Sepsis [None]
  - Tachypnoea [None]
  - Febrile neutropenia [None]
  - Blood culture positive [None]
  - Body temperature increased [None]

NARRATIVE: CASE EVENT DATE: 20201228
